FAERS Safety Report 11204085 (Version 1)
Quarter: 2015Q2

REPORT INFORMATION
  Report Type: Report from Study
  Country: US (occurrence: US)
  Receive Date: 20150619
  Receipt Date: 20150619
  Transmission Date: 20150821
  Serious: Yes (Hospitalization)
  Sender: FDA-Public Use
  Company Number: PHEH2015US008808

PATIENT
  Age: 55 Year
  Sex: Female

DRUGS (1)
  1. COSENTYX [Suspect]
     Active Substance: SECUKINUMAB
     Indication: PSORIASIS
     Dosage: 300 MG, QW
     Route: 058
     Dates: start: 20150424

REACTIONS (7)
  - Cardiac failure congestive [Unknown]
  - Pruritus [Not Recovered/Not Resolved]
  - Dyspnoea [Unknown]
  - Dry skin [Not Recovered/Not Resolved]
  - Dry mouth [Recovering/Resolving]
  - Injection site bruising [Recovering/Resolving]
  - Oedema peripheral [Not Recovered/Not Resolved]

NARRATIVE: CASE EVENT DATE: 20150427
